FAERS Safety Report 11835087 (Version 1)
Quarter: 2015Q4

REPORT INFORMATION
  Report Type: Spontaneous
  Country: US (occurrence: US)
  Receive Date: 20151215
  Receipt Date: 20151215
  Transmission Date: 20160305
  Serious: No
  Sender: FDA-Public Use
  Company Number: US-009507513-1512USA007535

PATIENT
  Age: 21 Year
  Sex: Female

DRUGS (1)
  1. JANUVIA [Suspect]
     Active Substance: SITAGLIPTIN PHOSPHATE
     Indication: TYPE 2 DIABETES MELLITUS
     Dosage: 1 TABLET/ ONCE A DAY
     Route: 048
     Dates: end: 20151125

REACTIONS (3)
  - Pain [Unknown]
  - Arthralgia [Unknown]
  - Myalgia [Unknown]
